FAERS Safety Report 9185929 (Version 1)
Quarter: 2013Q1

REPORT INFORMATION
  Report Type: Spontaneous
  Country: FR (occurrence: FR)
  Receive Date: 20130325
  Receipt Date: 20130325
  Transmission Date: 20140127
  Serious: Yes (Hospitalization)
  Sender: FDA-Public Use
  Company Number: FR-TEVA-391774ISR

PATIENT
  Age: 34 None
  Sex: Male

DRUGS (3)
  1. DEPAKINE [Suspect]
     Indication: EPILEPSY
     Route: 048
     Dates: start: 20060115, end: 20060203
  2. EPITOMAX [Concomitant]
     Route: 048
  3. URBANYL [Concomitant]
     Route: 048

REACTIONS (4)
  - Epilepsy [Recovered/Resolved]
  - Drug ineffective [Recovered/Resolved]
  - Fall [Recovered/Resolved]
  - Wound [Recovered/Resolved]
